FAERS Safety Report 6552165-3 (Version None)
Quarter: 2010Q1

REPORT INFORMATION
  Report Type: 
  Country: None (occurrence: None)
  Receive Date: 20100126
  Receipt Date: 20100115
  Transmission Date: 20100710
  Serious: Yes (Other)
  Sender: FDA-Public Use
  Company Number: CN-PFIZER INC-2010002894

PATIENT

DRUGS (1)
  1. VFEND [Suspect]

REACTIONS (1)
  - SPEECH DISORDER [None]
